FAERS Safety Report 11796567 (Version 4)
Quarter: 2016Q2

REPORT INFORMATION
  Report Type: Spontaneous
  Country: US (occurrence: US)
  Receive Date: 20151203
  Receipt Date: 20160406
  Transmission Date: 20160815
  Serious: Yes (Hospitalization, Other)
  Sender: FDA-Public Use
  Company Number: US-BAYER-2015-480959

PATIENT
  Age: 32 Year
  Sex: Female
  Weight: 68.27 kg

DRUGS (1)
  1. MIRENA [Suspect]
     Active Substance: LEVONORGESTREL
     Indication: CONTRACEPTION
     Dosage: 20 MCG/24HR, CONT
     Route: 015
     Dates: start: 20050312, end: 20090921

REACTIONS (6)
  - Pregnancy with contraceptive device [None]
  - Procedural pain [None]
  - Embedded device [None]
  - Genital haemorrhage [None]
  - Drug ineffective [None]
  - Device issue [None]

NARRATIVE: CASE EVENT DATE: 2009
